FAERS Safety Report 7964285-7 (Version None)
Quarter: 2011Q4

REPORT INFORMATION
  Report Type: 
  Country: None (occurrence: None)
  Receive Date: 20111208
  Receipt Date: 20111130
  Transmission Date: 20120403
  Serious: Yes (Hospitalization)
  Sender: FDA-Public Use
  Company Number: US-ASTELLAS-2011US006196

PATIENT
  Sex: Male

DRUGS (1)
  1. ERLOTINIB HYDROCHLORIDE [Suspect]
     Indication: LUNG CARCINOMA CELL TYPE UNSPECIFIED STAGE 0
     Dosage: 150 MG, UID/QD
     Route: 048
     Dates: start: 20110915

REACTIONS (6)
  - DIARRHOEA [None]
  - CARDIAC FAILURE CONGESTIVE [None]
  - RADIATION PNEUMONITIS [None]
  - RASH [None]
  - DYSPNOEA [None]
  - ACUTE MYOCARDIAL INFARCTION [None]
